FAERS Safety Report 15479083 (Version 1)
Quarter: 2018Q4

REPORT INFORMATION
  Report Type: Spontaneous
  Country: AU (occurrence: AU)
  Receive Date: 20181009
  Receipt Date: 20181009
  Transmission Date: 20190205
  Serious: Yes (Other)
  Sender: FDA-Public Use
  Company Number: AU-BAYER-2018-185413

PATIENT
  Age: 35 Year
  Sex: Female

DRUGS (4)
  1. ACETYLSALICYLIC ACID({=100 MG) [Suspect]
     Active Substance: ASPIRIN
  2. NIFEDIPINE. [Suspect]
     Active Substance: NIFEDIPINE
  3. BETAMETHASONE. [Concomitant]
     Active Substance: BETAMETHASONE
  4. MAGNESIUM SULPHATE [Concomitant]
     Active Substance: MAGNESIUM SULFATE

REACTIONS (4)
  - Maternal exposure during pregnancy [None]
  - Premature delivery [None]
  - Contraindicated product administered [None]
  - Off label use [None]
